FAERS Safety Report 19798641 (Version 1)
Quarter: 2021Q3

REPORT INFORMATION
  Report Type: Spontaneous
  Country: CA (occurrence: CA)
  Receive Date: 20210907
  Receipt Date: 20210907
  Transmission Date: 20211014
  Serious: Yes (Death)
  Sender: FDA-Public Use
  Company Number: CA-PFIZER INC-202101102382

PATIENT
  Age: 53 Year
  Sex: Female
  Weight: 60 kg

DRUGS (6)
  1. TYLENOL WITH CODEINE [Suspect]
     Active Substance: ACETAMINOPHEN\CODEINE PHOSPHATE
  2. COCAINE [Suspect]
     Active Substance: COCAINE
  3. FENTANYL. [Suspect]
     Active Substance: FENTANYL
  4. ALCOHOL. [Suspect]
     Active Substance: ALCOHOL
  5. KETAMINE [Suspect]
     Active Substance: KETAMINE
     Dosage: UNK
  6. LIDOCAINE HCL [Suspect]
     Active Substance: LIDOCAINE HYDROCHLORIDE
     Dosage: UNK

REACTIONS (4)
  - Blood ethanol [Fatal]
  - Postmortem blood drug level [Fatal]
  - Opiates positive [Fatal]
  - Syncope [Fatal]
